FAERS Safety Report 11594348 (Version 1)
Quarter: 2015Q4

REPORT INFORMATION
  Report Type: Report from Study
  Country: US (occurrence: DK)
  Receive Date: 20151005
  Receipt Date: 20151005
  Transmission Date: 20160304
  Serious: Yes (Hospitalization)
  Sender: FDA-Public Use
  Company Number: DK-FRI-1000080054

PATIENT
  Age: 38 Year
  Sex: Female
  Weight: 106 kg

DRUGS (11)
  1. MOVICOL [Concomitant]
     Active Substance: POLYETHYLENE GLYCOL 3350\POTASSIUM CHLORIDE\SODIUM BICARBONATE\SODIUM CHLORIDE
     Dosage: 1 DOSAGE FORM, AS REQUIRED
     Route: 048
     Dates: start: 20150519
  2. TOILAX [Concomitant]
     Active Substance: BISACODYL
     Dosage: 10 MG
     Route: 048
     Dates: start: 20150908
  3. QUETIAPINE [Concomitant]
     Active Substance: QUETIAPINE
     Dosage: 75 MG PER DAY MAX (50 MG, AS REQUIRED)
     Route: 048
     Dates: start: 20150810
  4. PINEX [Concomitant]
     Active Substance: ACETAMINOPHEN
     Dosage: 1000 MG
     Route: 048
     Dates: start: 20150709
  5. UNIKALK BASIC [Concomitant]
     Dosage: 2 TABLETS
     Route: 048
     Dates: start: 20150709
  6. ABILIFY [Concomitant]
     Active Substance: ARIPIPRAZOLE
     Dosage: 15 MG DAILY
     Route: 048
     Dates: start: 20150820
  7. LINACLOTIDE [Suspect]
     Active Substance: LINACLOTIDE
     Dosage: 290 MCG
     Route: 048
     Dates: start: 20150908, end: 20150908
  8. QUETIAPINE [Concomitant]
     Active Substance: QUETIAPINE
     Dosage: 50 MG
     Route: 048
     Dates: start: 20150908
  9. FEXOFENADINE [Concomitant]
     Active Substance: FEXOFENADINE\FEXOFENADINE HYDROCHLORIDE
     Dosage: 360 MG
     Route: 048
     Dates: start: 20150709
  10. APOVIT MULTI [Concomitant]
     Dosage: 1 TABLET
     Route: 048
     Dates: start: 20150115
  11. ABILIFY [Concomitant]
     Active Substance: ARIPIPRAZOLE
     Dosage: 10 MG
     Route: 048
     Dates: start: 20150820

REACTIONS (1)
  - Hypersensitivity [Recovered/Resolved]

NARRATIVE: CASE EVENT DATE: 20150908
